FAERS Safety Report 7523448-5 (Version None)
Quarter: 2011Q2

REPORT INFORMATION
  Report Type: 
  Country: None (occurrence: None)
  Receive Date: 20110601
  Receipt Date: 20110601
  Transmission Date: 20111010
  Serious: Yes (Hospitalization)
  Sender: FDA-Public Use
  Company Number: None

PATIENT
  Sex: Female
  Weight: 55.8 kg

DRUGS (5)
  1. ZOFRAN [Concomitant]
  2. PROTONIX [Concomitant]
  3. TAXOL [Suspect]
     Dosage: 80 MG
     Dates: end: 20110524
  4. CISPLATIN [Suspect]
     Dosage: 40 MG
     Dates: end: 20110524
  5. LEXAPRO [Concomitant]

REACTIONS (4)
  - DIARRHOEA [None]
  - UNEVALUABLE EVENT [None]
  - DEHYDRATION [None]
  - NAUSEA [None]
